FAERS Safety Report 4355487-X (Version None)
Quarter: 2004Q2

REPORT INFORMATION
  Report Type: 
  Country: None (occurrence: None)
  Receive Date: 20040505
  Receipt Date: 20031212
  Transmission Date: 20050107
  Serious: Yes (Death, Life-Threatening, Hospitalization)
  Sender: FDA-Public Use
  Company Number: PERD20030012

PATIENT
  Age: 21 Year
  Sex: Male

DRUGS (2)
  1. PERCODAN [Suspect]
     Dosage: PO
     Route: 048
     Dates: start: 20020101, end: 20020101
  2. PERCOCET [Suspect]
     Dosage: PO
     Route: 048
     Dates: start: 20020101, end: 20020101

REACTIONS (10)
  - ACIDOSIS [None]
  - BLOOD CREATINE PHOSPHOKINASE INCREASED [None]
  - BRAIN OEDEMA [None]
  - CARDIAC ARREST [None]
  - COMA [None]
  - HYPERKALAEMIA [None]
  - HYPOTENSION [None]
  - RESPIRATORY ARREST [None]
  - TROPONIN INCREASED [None]
  - VENTRICULAR FIBRILLATION [None]
